FAERS Safety Report 6418161-1 (Version None)
Quarter: 2009Q4

REPORT INFORMATION
  Report Type: 
  Country: None (occurrence: None)
  Receive Date: 20091028
  Receipt Date: 20091026
  Transmission Date: 20100525
  Serious: Yes (Other)
  Sender: FDA-Public Use
  Company Number: US-ELI_LILLY_AND_COMPANY-US200910006443

PATIENT
  Sex: Female
  Weight: 83.9 kg

DRUGS (1)
  1. BYETTA [Suspect]
     Indication: DIABETES MELLITUS
     Dosage: 5 UG, DAILY (1/D)
     Route: 058

REACTIONS (3)
  - FALL [None]
  - PARKINSON'S DISEASE [None]
  - UPPER LIMB FRACTURE [None]
